FAERS Safety Report 12010384 (Version 1)
Quarter: 2016Q1

REPORT INFORMATION
  Report Type: Spontaneous
  Country: US (occurrence: None)
  Receive Date: 20160204
  Receipt Date: 20160204
  Transmission Date: 20160526
  Serious: Yes (Hospitalization)
  Sender: FDA-Public Use
  Company Number: None

PATIENT
  Age: 70 Year
  Sex: Male
  Weight: 104.8 kg

DRUGS (2)
  1. WARFARIN [Suspect]
     Active Substance: WARFARIN
     Indication: ATRIAL FLUTTER
     Dates: start: 20160104, end: 20160108
  2. ENOXAPARIN [Suspect]
     Active Substance: ENOXAPARIN
     Indication: ATRIAL FLUTTER
     Route: 058
     Dates: start: 20160108, end: 20160108

REACTIONS (4)
  - Haemoglobin decreased [None]
  - Hypotension [None]
  - Dyspnoea [None]
  - Retroperitoneal haemorrhage [None]

NARRATIVE: CASE EVENT DATE: 20160109
